FAERS Safety Report 8762732 (Version 4)
Quarter: 2012Q4

REPORT INFORMATION
  Report Type: 
  Country: US (occurrence: US)
  Receive Date: 20120831
  Receipt Date: 20120920
  Transmission Date: 20130627
  Serious: Yes (Other)
  Sender: FDA-Public Use
  Company Number: US-ROCHE-1108963

PATIENT
  Age: 37 Year
  Sex: Male
  Weight: 100.33 kg

DRUGS (6)
  1. XOLAIR [Suspect]
     Indication: ASTHMA
     Route: 058
     Dates: start: 20120611, end: 20120815
  2. ZYRTEC [Concomitant]
  3. PROAIR (UNITED STATES) [Concomitant]
  4. SINGULAIR [Concomitant]
  5. PREDNISONE [Concomitant]
  6. NASONEX [Concomitant]

REACTIONS (2)
  - Dizziness [Recovered/Resolved]
  - Disorientation [Recovered/Resolved]
